FAERS Safety Report 25668916 (Version 1)
Quarter: 2025Q3

REPORT INFORMATION
  Report Type: Spontaneous
  Country: US (occurrence: US)
  Receive Date: 20250812
  Receipt Date: 20250812
  Transmission Date: 20251021
  Serious: Yes (Hospitalization)
  Sender: ROCHE
  Company Number: US-ROCHE-10000356072

PATIENT
  Age: 44 Year
  Sex: Female
  Weight: 80.74 kg

DRUGS (1)
  1. OCREVUS [Suspect]
     Active Substance: OCRELIZUMAB
     Indication: Primary progressive multiple sclerosis
     Dosage: 300 MG BEFORE THAT IN THE BEGINNING, LOWER THEN RAISED??MOST RECENT DOSE WAS ON 06-JUN-2025
     Route: 042

REACTIONS (5)
  - Asthenia [Not Recovered/Not Resolved]
  - Vitamin D deficiency [Unknown]
  - Amnesia [Not Recovered/Not Resolved]
  - Fatigue [Not Recovered/Not Resolved]
  - Multiple sclerosis relapse [Recovered/Resolved with Sequelae]

NARRATIVE: CASE EVENT DATE: 20250101
